FAERS Safety Report 8165329-2 (Version None)
Quarter: 2012Q1

REPORT INFORMATION
  Report Type: 
  Country: None (occurrence: None)
  Receive Date: 20120227
  Receipt Date: 20120214
  Transmission Date: 20120608
  Serious: Yes (Life-Threatening, Hospitalization)
  Sender: FDA-Public Use
  Company Number: US-JNJFOC-20110701055

PATIENT
  Sex: Male
  Weight: 75.75 kg

DRUGS (15)
  1. REMICADE [Suspect]
     Indication: COLITIS ULCERATIVE
     Route: 042
     Dates: start: 20101228
  2. ASPIRIN [Concomitant]
     Route: 065
     Dates: start: 20110817
  3. CARTIA XT [Concomitant]
     Route: 065
     Dates: start: 20111208
  4. LOSARTAN POTASSIUM [Concomitant]
     Route: 048
     Dates: start: 20110520
  5. AZITHROMYCIN [Concomitant]
     Route: 065
  6. FLOMAX [Concomitant]
     Route: 065
  7. REMICADE [Suspect]
     Dosage: 3RD DOSE
     Route: 042
     Dates: start: 20110222, end: 20110401
  8. GLIPIZIDE [Concomitant]
     Indication: DIABETES MELLITUS
     Route: 048
     Dates: start: 20101230
  9. FOLIC ACID [Concomitant]
     Dosage: 1 TABLET AS DIRECTED
     Route: 065
     Dates: start: 20110520
  10. GABAPENTIN [Concomitant]
     Dosage: 4 CAPSULES TWICE DAILY
     Route: 048
     Dates: start: 20111130
  11. SIMVASTATIN [Concomitant]
     Route: 048
     Dates: start: 20120203
  12. REMICADE [Suspect]
     Route: 042
     Dates: start: 20101214
  13. TAMSULOSIN HCL [Concomitant]
     Route: 065
     Dates: start: 20110712
  14. COMBIVENT [Concomitant]
     Route: 055
  15. DILTIAZEM HCL [Concomitant]
     Route: 065

REACTIONS (1)
  - PNEUMOCYSTIS JIROVECI PNEUMONIA [None]
